FAERS Safety Report 7027316 (Version 4)
Quarter: 2016Q2

REPORT INFORMATION
  Report Type: Spontaneous
  Country: US (occurrence: US)
  Receive Date: 20090618
  Receipt Date: 20160519
  Transmission Date: 20160815
  Serious: No
  Sender: FDA-Public Use
  Company Number: US-ASTRAZENECA-2008UW08023

PATIENT
  Age: 64 Year
  Sex: Male
  Weight: 72.6 kg

DRUGS (13)
  1. RHINOCORT AQUA [Suspect]
     Active Substance: BUDESONIDE
     Indication: MULTIPLE ALLERGIES
     Route: 045
     Dates: start: 2001
  2. RHINOCORT AQUA [Suspect]
     Active Substance: BUDESONIDE
     Indication: VASOMOTOR RHINITIS
     Route: 045
     Dates: start: 20160426, end: 20160426
  3. MECLIZINE [Concomitant]
     Active Substance: MECLIZINE HYDROCHLORIDE
     Indication: DIZZINESS
  4. RHINOCORT AQUA [Suspect]
     Active Substance: BUDESONIDE
     Indication: VASOMOTOR RHINITIS
     Route: 045
     Dates: start: 2001
  5. CLARITIN [Concomitant]
     Active Substance: LORATADINE
  6. RHINOCORT AQUA [Suspect]
     Active Substance: BUDESONIDE
     Indication: RHINITIS
     Route: 045
     Dates: start: 2001
  7. RHINOCORT AQUA [Suspect]
     Active Substance: BUDESONIDE
     Indication: VASOMOTOR RHINITIS
     Route: 045
     Dates: start: 2001
  8. DOXEPIN [Concomitant]
     Active Substance: DOXEPIN
     Indication: SLEEP DISORDER
  9. RHINOCORT AQUA [Suspect]
     Active Substance: BUDESONIDE
     Indication: RHINITIS
     Route: 045
     Dates: start: 2001
  10. RHINOCORT AQUA [Suspect]
     Active Substance: BUDESONIDE
     Indication: RHINITIS
     Route: 045
     Dates: start: 20160426, end: 20160426
  11. RHINOCORT AQUA [Suspect]
     Active Substance: BUDESONIDE
     Indication: MULTIPLE ALLERGIES
     Route: 045
     Dates: start: 20160426, end: 20160426
  12. RHINOCORT AQUA [Suspect]
     Active Substance: BUDESONIDE
     Indication: MULTIPLE ALLERGIES
     Route: 045
     Dates: start: 2001
  13. BENTYL [Concomitant]
     Active Substance: DICYCLOMINE HYDROCHLORIDE

REACTIONS (14)
  - Nausea [Recovering/Resolving]
  - Toothache [Recovering/Resolving]
  - Nasal discomfort [Recovering/Resolving]
  - Off label use [Recovered/Resolved]
  - Sinus congestion [Unknown]
  - Dizziness [Recovering/Resolving]
  - Sinusitis [Unknown]
  - Muscular weakness [Not Recovered/Not Resolved]
  - Product quality issue [Unknown]
  - Skin irritation [Unknown]
  - Therapeutic response decreased [Unknown]
  - Burning sensation [Unknown]
  - Product use issue [Recovered/Resolved]
  - Nasal oedema [Recovering/Resolving]

NARRATIVE: CASE EVENT DATE: 20160426
